FAERS Safety Report 5505132-2 (Version None)
Quarter: 2007Q4

REPORT INFORMATION
  Report Type: 
  Country: None (occurrence: None)
  Receive Date: 20071031
  Receipt Date: 20071019
  Transmission Date: 20080405
  Serious: Yes (Hospitalization)
  Sender: FDA-Public Use
  Company Number: RENA-12327

PATIENT
  Age: 61 Year
  Sex: Female

DRUGS (1)
  1. RENAGEL [Suspect]
     Indication: HYPERPHOSPHATAEMIA
     Dosage: 0.8 G TID PO
     Route: 048
     Dates: start: 20061201, end: 20070814

REACTIONS (4)
  - ASTHENIA [None]
  - HYPERKALAEMIA [None]
  - MOBILITY DECREASED [None]
  - TREMOR [None]
